FAERS Safety Report 24438110 (Version 1)
Quarter: 2024Q4

REPORT INFORMATION
  Report Type: Spontaneous
  Country: US (occurrence: None)
  Receive Date: 20241014
  Receipt Date: 20241014
  Transmission Date: 20250114
  Serious: Yes (Hospitalization)
  Sender: Public
  Company Number: None

PATIENT
  Age: 53 Year
  Sex: Male

DRUGS (3)
  1. PREVYMIS [Suspect]
     Active Substance: LETERMOVIR
     Indication: Immunodeficiency
     Dosage: FREQUENCY : DAILY;?
     Route: 048
     Dates: start: 202403
  2. DEFERASIROX TAB [Concomitant]
  3. PROMACTA [Concomitant]
     Active Substance: ELTROMBOPAG OLAMINE

REACTIONS (3)
  - Pneumonia fungal [None]
  - Immunosuppression [None]
  - Sinus disorder [None]

NARRATIVE: CASE EVENT DATE: 20240814
